FAERS Safety Report 8215815 (Version 5)
Quarter: 2012Q4

REPORT INFORMATION
  Report Type: Report from Study
  Country: JP (occurrence: JP)
  Receive Date: 20111031
  Receipt Date: 20121106
  Transmission Date: 20130627
  Serious: Yes (Hospitalization)
  Sender: FDA-Public Use
  Company Number: PHHO2011JP18021

PATIENT
  Age: 67 Year
  Sex: Female
  Weight: 45 kg

DRUGS (13)
  1. CGS 20267 [Suspect]
     Indication: BREAST CANCER
     Dosage: 1 DF, UNK
     Route: 048
     Dates: start: 20071112, end: 20121001
  2. ETHYL LOFLAZEPATE [Concomitant]
     Indication: DEPRESSION
     Dosage: 5 mg, UNK
     Route: 048
     Dates: start: 20090530
  3. MEDEPOLIN [Concomitant]
     Indication: DEPRESSION
     Dosage: 0.4 mg, UNK
     Route: 048
     Dates: start: 20100319
  4. BAYASPIRIN [Concomitant]
     Indication: CAROTID ARTERY STENOSIS
     Dosage: 100 mg, UNK
     Route: 048
     Dates: start: 20111017
  5. BAYASPIRIN [Concomitant]
     Dosage: 100 mg, UNK
     Route: 048
     Dates: start: 20121023
  6. PROTECADIN [Concomitant]
     Indication: GASTRIC ULCER
     Dosage: 10 mg, UNK
     Route: 048
     Dates: start: 20110201
  7. LIVALO [Concomitant]
     Indication: DYSLIPIDAEMIA
     Dosage: 2 mg, UNK
     Route: 048
     Dates: start: 20110606, end: 20120424
  8. TSUMURA [Concomitant]
     Indication: FATIGUE
     Dosage: 7.5 mg, UNK
     Route: 048
     Dates: start: 20080528
  9. ASPARA-CA [Concomitant]
     Indication: OSTEOPOROSIS
     Dosage: 1200 mg, UNK
     Route: 048
     Dates: start: 20081203
  10. ALFACALCIDOL [Concomitant]
     Indication: OSTEOPOROSIS
     Dosage: 0.5 ug, UNK
     Route: 048
     Dates: start: 20081203
  11. OPALMON [Concomitant]
     Indication: BACK PAIN
     Dosage: 30 ug, UNK
     Route: 048
     Dates: start: 20100607, end: 20121023
  12. LOXOPROFEN SODIUM [Concomitant]
     Indication: BACK PAIN
     Dosage: UNK
     Route: 048
     Dates: start: 20100607, end: 20120130
  13. TEPRENONE [Concomitant]
     Indication: GASTRITIS PROPHYLAXIS
     Dosage: UNK
     Route: 048
     Dates: start: 20101004, end: 20120130

REACTIONS (1)
  - Lumbar spinal stenosis [Not Recovered/Not Resolved]
